FAERS Safety Report 7452989-4 (Version None)
Quarter: 2011Q2

REPORT INFORMATION
  Report Type: 
  Country: None (occurrence: None)
  Receive Date: 20110502
  Receipt Date: 20101214
  Transmission Date: 20111010
  Serious: No
  Sender: FDA-Public Use
  Company Number: US-ASTRAZENECA-2010SE59265

PATIENT
  Age: 67 Year
  Sex: Female
  Weight: 70.3 kg

DRUGS (7)
  1. NEXIUM [Suspect]
     Route: 048
     Dates: start: 20101207
  2. PREMARIN [Concomitant]
  3. HYDROXYCHHLOROQUINE [Concomitant]
  4. LEVOXYL [Concomitant]
  5. CALTRATE WITH VITAMIN D [Concomitant]
  6. PRAVASTATIN [Concomitant]
  7. ULTRAM [Concomitant]

REACTIONS (5)
  - CHEST DISCOMFORT [None]
  - CHROMATURIA [None]
  - CHEST PAIN [None]
  - DRUG DOSE OMISSION [None]
  - VOMITING [None]
